FAERS Safety Report 5710100-1 (Version None)
Quarter: 2008Q2

REPORT INFORMATION
  Report Type: 
  Country: None (occurrence: None)
  Receive Date: 20080418
  Receipt Date: 20080102
  Transmission Date: 20081010
  Serious: Yes (Other)
  Sender: FDA-Public Use
  Company Number: US-ASTRAZENECA-2007UW26359

PATIENT
  Age: 56 Year
  Sex: Female
  Weight: 45.4 kg

DRUGS (7)
  1. TOPROL-XL [Suspect]
     Route: 048
     Dates: start: 20070101
  2. TOPROL-XL [Suspect]
     Route: 048
     Dates: end: 20071104
  3. OXYCONTIN [Concomitant]
  4. OXYCODONE HCL [Concomitant]
  5. KLONAPIN [Concomitant]
  6. AMBIEN [Concomitant]
  7. PEPCID AC [Concomitant]

REACTIONS (1)
  - BRADYCARDIA [None]
